FAERS Safety Report 18445501 (Version 1)
Quarter: 2020Q4

REPORT INFORMATION
  Report Type: Spontaneous
  Country: US (occurrence: US)
  Receive Date: 20201029
  Receipt Date: 20201029
  Transmission Date: 20210114
  Serious: Yes (Hospitalization)
  Sender: FDA-Public Use
  Company Number: None

PATIENT
  Sex: Female

DRUGS (16)
  1. CYMBALTA [Concomitant]
     Active Substance: DULOXETINE HYDROCHLORIDE
  2. GABAPENTIN. [Concomitant]
     Active Substance: GABAPENTIN
  3. DILANTIN INFATABS [Concomitant]
     Active Substance: PHENYTOIN
  4. AMBRISENTAN 10MG TAB [Suspect]
     Active Substance: AMBRISENTAN
     Indication: PULMONARY ARTERIAL HYPERTENSION
     Route: 048
  5. LASIK [Concomitant]
     Active Substance: FUROSEMIDE\POTASSIUM CHLORIDE
  6. ONE A DAY WOMENS PRENATAL [Concomitant]
  7. DOK [Concomitant]
     Active Substance: DOCUSATE SODIUM
  8. ASPIRIN EC [Concomitant]
     Active Substance: ASPIRIN
  9. LORATADINE. [Concomitant]
     Active Substance: LORATADINE
  10. ORENITRAM [Concomitant]
     Active Substance: TREPROSTINIL
  11. DEPAKOTE [Concomitant]
     Active Substance: DIVALPROEX SODIUM
  12. PANTOPRAZOLE SODIUM. [Concomitant]
     Active Substance: PANTOPRAZOLE SODIUM
  13. DILANTIN [Concomitant]
     Active Substance: PHENYTOIN
  14. OXYCODONE HCL CR [Concomitant]
     Active Substance: OXYCODONE HYDROCHLORIDE
  15. SILDENAFIL CITRATE. [Concomitant]
     Active Substance: SILDENAFIL CITRATE
  16. SEROQUEL [Concomitant]
     Active Substance: QUETIAPINE FUMARATE

REACTIONS (2)
  - Therapy interrupted [None]
  - Electrocardiogram abnormal [None]
